FAERS Safety Report 14781731 (Version 1)
Quarter: 2018Q2

REPORT INFORMATION
  Report Type: Other
  Country: DE (occurrence: DE)
  Receive Date: 20180420
  Receipt Date: 20180420
  Transmission Date: 20180711
  Serious: Yes (Other)
  Sender: FDA-Public Use
  Company Number: DE-MACLEODS PHARMACEUTICALS US LTD-MAC2018012697

PATIENT

DRUGS (1)
  1. ESCITALOPRAM 10MG TABLET [Suspect]
     Active Substance: ESCITALOPRAM OXALATE
     Indication: DEPRESSION
     Dosage: 10 MG, QD, (1 TABLET PER DAY 10MG)
     Route: 048
     Dates: start: 20160929, end: 201702

REACTIONS (4)
  - Loss of personal independence in daily activities [Recovered/Resolved]
  - Communication disorder [Recovered/Resolved]
  - Sluggishness [Recovered/Resolved]
  - Memory impairment [Recovered/Resolved]

NARRATIVE: CASE EVENT DATE: 201610
